FAERS Safety Report 9001879 (Version 1)
Quarter: 2013Q1

REPORT INFORMATION
  Report Type: Report from Study
  Country: US (occurrence: US)
  Receive Date: 20130108
  Receipt Date: 20130108
  Transmission Date: 20140127
  Serious: Yes (Hospitalization)
  Sender: FDA-Public Use
  Company Number: US-ELI_LILLY_AND_COMPANY-US201202003309

PATIENT
  Age: 55 Year
  Sex: Male
  Weight: 79.82 kg

DRUGS (6)
  1. GEMCITABINE HYDROCHLORIDE [Suspect]
     Indication: PANCREATIC CARCINOMA METASTATIC
     Dosage: 1940 MG, EVERY 3 WEEKS
     Route: 042
     Dates: start: 20111229
  2. OTHER PHARMA COMPANY INV DRUG [Suspect]
     Indication: PANCREATIC CARCINOMA METASTATIC
     Dosage: 700 MG, EVERY 2 WEEKS
     Route: 065
     Dates: start: 20111229
  3. NORCO [Concomitant]
     Dosage: UNK
     Dates: start: 20111221, end: 20120105
  4. NUCYNTA [Concomitant]
     Dosage: UNK
     Dates: start: 20111228, end: 20120105
  5. KYTRIL [Concomitant]
     Dosage: UNK
     Dates: start: 20111229
  6. DEXAMETHASONE [Concomitant]
     Dosage: UNK
     Dates: start: 20111229

REACTIONS (5)
  - Abdominal pain [Recovered/Resolved]
  - Nausea [Recovered/Resolved]
  - Vomiting [Recovered/Resolved]
  - Dehydration [Recovered/Resolved]
  - Hyperglycaemia [Unknown]
